FAERS Safety Report 5857080-6 (Version None)
Quarter: 2008Q3

REPORT INFORMATION
  Report Type: 
  Country: None (occurrence: None)
  Receive Date: 20080825
  Receipt Date: 20080818
  Transmission Date: 20090109
  Serious: No
  Sender: FDA-Public Use
  Company Number: US-BOEHRINGER INGELHEIM GMBH, GERMANY-2008-BP-13050BP

PATIENT
  Sex: Female

DRUGS (4)
  1. ZANTAC 150 [Suspect]
     Indication: ABDOMINAL PAIN UPPER
     Dates: start: 20080818
  2. ZANTAC 150 [Suspect]
     Indication: FLATULENCE
  3. TUMS [Suspect]
     Indication: ABDOMINAL PAIN UPPER
     Dates: start: 20080818
  4. TUMS [Suspect]
     Indication: FLATULENCE

REACTIONS (2)
  - ABDOMINAL PAIN UPPER [None]
  - DRUG INEFFECTIVE [None]
